FAERS Safety Report 8483866-8 (Version None)
Quarter: 2012Q2

REPORT INFORMATION
  Report Type: 
  Country: None (occurrence: None)
  Receive Date: 20120625
  Receipt Date: 20120612
  Transmission Date: 20120825
  Serious: No
  Sender: FDA-Public Use
  Company Number: 2012SP032385

PATIENT
  Sex: Female

DRUGS (13)
  1. PERINDOPRIL ERBUMINE [Concomitant]
  2. SIMVASTATIN [Concomitant]
  3. BISOPROLOL FUMARATE [Concomitant]
  4. FRUSEMIDE /00032601 [Concomitant]
  5. GLICLAZIDE [Concomitant]
  6. METFORMIN HCL [Concomitant]
  7. OLANZAPINE [Concomitant]
  8. REBOXETINE [Concomitant]
  9. ASPIRIN [Concomitant]
  10. SYCREST (ASENAPINE /05706901/) [Suspect]
     Indication: BIPOLAR DISORDER
     Dosage: 5 MG; BID; SL
     Route: 060
     Dates: start: 20120602
  11. SYCREST (ASENAPINE /05706901/) [Suspect]
     Indication: MANIA
     Dosage: 5 MG; BID; SL
     Route: 060
     Dates: start: 20120602
  12. SPIRONOLACTONE [Concomitant]
  13. LAMOTRIGINE [Concomitant]

REACTIONS (3)
  - DYSPNOEA [None]
  - SOMNOLENCE [None]
  - BLOOD GLUCOSE INCREASED [None]
